FAERS Safety Report 6693249-9 (Version None)
Quarter: 2010Q2

REPORT INFORMATION
  Report Type: 
  Country: None (occurrence: None)
  Receive Date: 20100421
  Receipt Date: 20100421
  Transmission Date: 20101027
  Serious: No
  Sender: FDA-Public Use
  Company Number: None

PATIENT
  Sex: Female
  Weight: 42 kg

DRUGS (1)
  1. RESTASIS [Suspect]
     Dosage: TWICE A DAY

REACTIONS (3)
  - IMMUNE SYSTEM DISORDER [None]
  - PYREXIA [None]
  - WHITE BLOOD CELL COUNT DECREASED [None]
